FAERS Safety Report 4290024-X (Version None)
Quarter: 2004Q1

REPORT INFORMATION
  Report Type: 
  Country: None (occurrence: None)
  Receive Date: 20040210
  Receipt Date: 20021014
  Transmission Date: 20041129
  Serious: Yes (Hospitalization, Disabling, Other)
  Sender: FDA-Public Use
  Company Number: WAES 0210USA01514

PATIENT
  Age: 58 Year
  Sex: Male
  Weight: 105 kg

DRUGS (4)
  1. HERBS (UNSPECIFIED) [Concomitant]
     Dates: start: 20010321, end: 20030708
  2. PRILOSEC [Concomitant]
  3. VIOXX [Suspect]
     Indication: OSTEOARTHRITIS
     Route: 048
     Dates: start: 20000804
  4. VIOXX [Suspect]
     Indication: DIABETES MELLITUS
     Route: 048
     Dates: start: 20000804

REACTIONS (29)
  - ARTHRALGIA [None]
  - ATAXIA [None]
  - BALANCE DISORDER [None]
  - BARRETT'S OESOPHAGUS [None]
  - BLOOD GLUCOSE INCREASED [None]
  - BLOOD PRESSURE INCREASED [None]
  - BURNING SENSATION [None]
  - CEREBROVASCULAR ACCIDENT [None]
  - DIZZINESS POSTURAL [None]
  - DYSPEPSIA [None]
  - DYSPNOEA [None]
  - EMOTIONAL DISTRESS [None]
  - GAIT DISTURBANCE [None]
  - GALLBLADDER DISORDER [None]
  - HYPERTENSION [None]
  - INJURY [None]
  - JOINT SPRAIN [None]
  - JOINT SWELLING [None]
  - LACUNAR INFARCTION [None]
  - LIGAMENT INJURY [None]
  - MEMORY IMPAIRMENT [None]
  - NAUSEA [None]
  - OSTEOARTHRITIS [None]
  - PAIN IN EXTREMITY [None]
  - TACHYCARDIA [None]
  - TRANSIENT ISCHAEMIC ATTACK [None]
  - TREMOR [None]
  - VOMITING [None]
  - WERNICKE'S ENCEPHALOPATHY [None]
